FAERS Safety Report 7644581-3 (Version None)
Quarter: 2011Q3

REPORT INFORMATION
  Report Type: 
  Country: None (occurrence: None)
  Receive Date: 20110725
  Receipt Date: 20110708
  Transmission Date: 20111222
  Serious: Yes (Other)
  Sender: FDA-Public Use
  Company Number: AUR-APL-2010-03200

PATIENT
  Age: 56 Year
  Sex: Female

DRUGS (6)
  1. PRAVASTATIN [Concomitant]
  2. SIMVASTATIN [Suspect]
     Indication: PRODUCT USED FOR UNKNOWN INDICATION
     Dosage: (40 MG)
  3. FENOFIBRATE [Concomitant]
  4. ATORVASTATIN [Suspect]
     Indication: PRODUCT USED FOR UNKNOWN INDICATION
     Dosage: (10 MG)
  5. ROSUVASTATIN [Concomitant]
  6. METFORMIN HCL [Concomitant]

REACTIONS (3)
  - APOLIPOPROTEIN A-I DECREASED [None]
  - METABOLIC SYNDROME [None]
  - HIGH DENSITY LIPOPROTEIN DECREASED [None]
